FAERS Safety Report 7737340-4 (Version None)
Quarter: 2011Q3

REPORT INFORMATION
  Report Type: 
  Country: None (occurrence: None)
  Receive Date: 20110908
  Receipt Date: 20101203
  Transmission Date: 20111222
  Serious: No
  Sender: FDA-Public Use
  Company Number: US-BAYER-2010-006551

PATIENT
  Age: 85 Year
  Sex: Female

DRUGS (1)
  1. CIPRO [Suspect]
     Indication: CYSTITIS
     Dosage: 500 MG, UNK
     Dates: start: 20101202

REACTIONS (1)
  - NO ADVERSE EVENT [None]
